FAERS Safety Report 10205979 (Version 1)
Quarter: 2014Q2

REPORT INFORMATION
  Report Type: Spontaneous
  Country: US (occurrence: None)
  Receive Date: 20140527
  Receipt Date: 20140527
  Transmission Date: 20141212
  Serious: Yes (Other)
  Sender: FDA-Public Use
  Company Number: None

PATIENT
  Age: 70 Year
  Sex: Female
  Weight: 65.77 kg

DRUGS (1)
  1. PRAVASTATIN SODIUM [Suspect]
     Indication: BLOOD CHOLESTEROL INCREASED
     Dosage: 1 PILL, ONCE DAILY, TAKEN BY MOUTH
     Route: 048
     Dates: start: 20140422, end: 20140425

REACTIONS (5)
  - Amnesia [None]
  - Chills [None]
  - Muscular weakness [None]
  - Headache [None]
  - Dizziness [None]
